FAERS Safety Report 7421035-0 (Version None)
Quarter: 2011Q2

REPORT INFORMATION
  Report Type: 
  Country: None (occurrence: None)
  Receive Date: 20110418
  Receipt Date: 20110406
  Transmission Date: 20111010
  Serious: Yes (Hospitalization)
  Sender: FDA-Public Use
  Company Number: US-ACTELION-A-NJ2011-46684

PATIENT

DRUGS (4)
  1. COUMADIN [Concomitant]
  2. TRACLEER [Suspect]
     Indication: PULMONARY ARTERIAL HYPERTENSION
     Dosage: UNK
     Route: 048
     Dates: start: 20100601
  3. CALCIUM CHANNEL BLOCKERS [Concomitant]
  4. ASPIRIN [Concomitant]

REACTIONS (1)
  - GALLBLADDER OPERATION [None]
